FAERS Safety Report 11151343 (Version 2)
Quarter: 2015Q2

REPORT INFORMATION
  Report Type: Spontaneous
  Country: FR (occurrence: FR)
  Receive Date: 20150601
  Receipt Date: 20150602
  Transmission Date: 20150821
  Serious: Yes (Other)
  Sender: FDA-Public Use
  Company Number: FR-JNJFOC-20150514720

PATIENT
  Age: 70 Year
  Sex: Female

DRUGS (3)
  1. DOGMATIL [Suspect]
     Active Substance: SULPIRIDE
     Indication: ANXIETY
     Route: 065
  2. LEPTICUR [Concomitant]
     Active Substance: TROPATEPINE HYDROCHLORIDE
     Indication: PRODUCT USED FOR UNKNOWN INDICATION
     Route: 065
  3. HALDOL [Suspect]
     Active Substance: HALOPERIDOL
     Indication: ANXIETY
     Route: 065

REACTIONS (6)
  - Headache [Unknown]
  - Diplopia [Unknown]
  - VIIth nerve paralysis [Unknown]
  - Incorrect drug administration duration [Not Recovered/Not Resolved]
  - Lymphocytosis [Not Recovered/Not Resolved]
  - Contraindicated drug administered [Recovered/Resolved]

NARRATIVE: CASE EVENT DATE: 2014
